FAERS Safety Report 6538570-X (Version None)
Quarter: 2010Q1

REPORT INFORMATION
  Report Type: 
  Country: None (occurrence: None)
  Receive Date: 20100113
  Receipt Date: 20100113
  Transmission Date: 20100710
  Serious: Yes (Other)
  Sender: FDA-Public Use
  Company Number: None

PATIENT
  Age: 62 Year
  Sex: Male
  Weight: 99.7913 kg

DRUGS (1)
  1. LEVAQUIN [Suspect]
     Indication: COLITIS
     Dosage: 500MG ONCE DAILY PO
     Route: 048
     Dates: start: 20100112, end: 20100112

REACTIONS (2)
  - PRURITUS [None]
  - URTICARIA [None]
